FAERS Safety Report 17722237 (Version 2)
Quarter: 2020Q2

REPORT INFORMATION
  Report Type: Spontaneous
  Country: JP (occurrence: JP)
  Receive Date: 20200429
  Receipt Date: 20200522
  Transmission Date: 20200714
  Serious: Yes (Other)
  Sender: FDA-Public Use
  Company Number: JP-HORIZON-BUP-0026-2020

PATIENT
  Age: 21 Day
  Sex: Male

DRUGS (4)
  1. L-CARTIN [Concomitant]
     Active Substance: LEVOCARNITINE HYDROCHLORIDE
     Indication: ARGININOSUCCINATE SYNTHETASE DEFICIENCY
  2. ARGI-U [Concomitant]
     Indication: ARGININOSUCCINATE SYNTHETASE DEFICIENCY
  3. SODIUM BENZOATE [Suspect]
     Active Substance: SODIUM BENZOATE
     Indication: ARGININOSUCCINATE SYNTHETASE DEFICIENCY
  4. BUPHENYL [Suspect]
     Active Substance: SODIUM PHENYLBUTYRATE
     Indication: ARGININOSUCCINATE SYNTHETASE DEFICIENCY
     Dosage: 0.75G PER DAY
     Route: 048
     Dates: start: 20200325

REACTIONS (1)
  - Cholestasis [Recovering/Resolving]

NARRATIVE: CASE EVENT DATE: 20200325
